FAERS Safety Report 13804874 (Version 1)
Quarter: 2017Q3

REPORT INFORMATION
  Report Type: Spontaneous
  Country: US (occurrence: US)
  Receive Date: 20170728
  Receipt Date: 20170728
  Transmission Date: 20171127
  Serious: No
  Sender: FDA-Public Use
  Company Number: US-PFIZER INC-2017324781

PATIENT
  Age: 46 Year
  Sex: Female

DRUGS (1)
  1. XELJANZ XR [Suspect]
     Active Substance: TOFACITINIB CITRATE
     Indication: RHEUMATOID ARTHRITIS
     Dosage: 11 MG, ONCE DAILY

REACTIONS (5)
  - Blood calcium increased [Recovering/Resolving]
  - Vitamin C decreased [Unknown]
  - Vitamin D decreased [Unknown]
  - Red blood cell count increased [Recovering/Resolving]
  - Protein total increased [Recovering/Resolving]
